FAERS Safety Report 5394502-1 (Version None)
Quarter: 2007Q3

REPORT INFORMATION
  Report Type: 
  Country: None (occurrence: None)
  Receive Date: 20070723
  Receipt Date: 20070717
  Transmission Date: 20080115
  Serious: Yes (Hospitalization)
  Sender: FDA-Public Use
  Company Number: US-ASTRAZENECA-2007UW16888

PATIENT
  Age: 78 Year
  Sex: Female
  Weight: 74.2 kg

DRUGS (9)
  1. SEROQUEL [Suspect]
     Route: 048
     Dates: start: 20050301
  2. ABILIFY [Suspect]
     Indication: SCHIZOPHRENIA
     Route: 048
     Dates: start: 20061101
  3. ASPIRIN [Concomitant]
  4. LIPITOR [Concomitant]
  5. NORVASC [Concomitant]
  6. LISINOPRIL [Concomitant]
     Route: 048
  7. PREDNISONE [Concomitant]
  8. XANAX [Concomitant]
  9. PREVACID [Concomitant]

REACTIONS (1)
  - PYELONEPHRITIS [None]
